FAERS Safety Report 9182104 (Version 5)
Quarter: 2013Q4

REPORT INFORMATION
  Report Type: Spontaneous
  Country: US (occurrence: US)
  Receive Date: 20130322
  Receipt Date: 20131107
  Transmission Date: 20140711
  Serious: Yes (Death, Hospitalization, Other)
  Sender: FDA-Public Use
  Company Number: US-B.I. PHARMACEUTICALS,INC./RIDGEFIELD-2013-BI-07185BP

PATIENT
  Age: 79 Year
  Sex: Female
  Weight: 47.63 kg

DRUGS (23)
  1. PRADAXA [Suspect]
     Indication: ATRIAL FIBRILLATION
     Dosage: 300 MG
     Route: 048
     Dates: start: 20110411, end: 201203
  2. ATIVAN [Concomitant]
  3. LOPRESSOR [Concomitant]
     Dosage: 25 MG
     Route: 048
  4. HYDRALAZINE [Concomitant]
     Dosage: 100 MG
     Route: 048
  5. CLONIDINE [Concomitant]
     Dosage: 0.1 MG
     Route: 048
  6. PROPAFENONE [Concomitant]
     Indication: ATRIAL FIBRILLATION
     Dosage: 150 MG
     Route: 048
  7. SAVELLA [Concomitant]
     Dosage: 50 MG
     Route: 048
  8. PEPCID [Concomitant]
     Dosage: 40 MG
     Route: 048
  9. MULTIVITAMIN [Concomitant]
  10. NEURONTIN [Concomitant]
     Dosage: 300 MG
     Route: 048
  11. SINGULAIR [Concomitant]
     Dosage: 19 MG
     Route: 048
  12. FERROUS SULFATE [Concomitant]
     Dosage: 325 MG
     Route: 048
  13. CELEXA [Concomitant]
     Dosage: 20 MG
     Route: 048
  14. DEMADEX [Concomitant]
     Dosage: 20 MG
     Route: 048
  15. DILAUDID [Concomitant]
     Indication: PAIN
     Route: 048
  16. DULCOLAX [Concomitant]
     Indication: CONSTIPATION
     Route: 054
  17. MILK OF MAGNESIA [Concomitant]
     Indication: CONSTIPATION
     Route: 048
  18. PREPARATION H [Concomitant]
     Indication: HAEMORRHOIDS
     Route: 054
  19. TRAVATAN [Concomitant]
  20. TYLENOL [Concomitant]
     Indication: PAIN
     Dosage: 650 MG
     Route: 048
  21. ALOE VERA SKIN PROTECTANT EX [Concomitant]
     Indication: ERYTHEMA
     Route: 061
  22. SENNA-S [Concomitant]
     Route: 048
  23. TRILEPTA [Concomitant]
     Dosage: 300 MG
     Route: 048

REACTIONS (6)
  - Gastrointestinal haemorrhage [Fatal]
  - Haemorrhage [Unknown]
  - Abdominal pain upper [Unknown]
  - Coagulopathy [Unknown]
  - Haematuria [Recovered/Resolved]
  - Vaginal haemorrhage [Unknown]
